FAERS Safety Report 4651064-1 (Version None)
Quarter: 2005Q2

REPORT INFORMATION
  Report Type: 
  Country: None (occurrence: None)
  Receive Date: 20050503
  Receipt Date: 20050426
  Transmission Date: 20051028
  Serious: Yes (Hospitalization)
  Sender: FDA-Public Use
  Company Number: PHBS2005ES06163

PATIENT
  Age: 39 Year
  Sex: Male

DRUGS (1)
  1. CYCLOSPORINE [Suspect]
     Indication: LIVER TRANSPLANT

REACTIONS (7)
  - COUGH [None]
  - DYSPNOEA [None]
  - GRANULOMA [None]
  - LYMPHADENOPATHY [None]
  - NODULE [None]
  - PYREXIA [None]
  - SARCOIDOSIS [None]
